FAERS Safety Report 9226790 (Version 1)
Quarter: 2013Q2

REPORT INFORMATION
  Report Type: Spontaneous
  Country: US (occurrence: None)
  Receive Date: 20130410
  Receipt Date: 20130410
  Transmission Date: 20140414
  Serious: Yes (Hospitalization)
  Sender: FDA-Public Use
  Company Number: SYM-2013-02391

PATIENT
  Age: 18 Year
  Sex: Male

DRUGS (1)
  1. XENAZINE [Suspect]
     Indication: EXTRAPYRAMIDAL DISORDER
     Dates: start: 20110603

REACTIONS (1)
  - Investigation [None]
